FAERS Safety Report 7845214-3 (Version None)
Quarter: 2011Q4

REPORT INFORMATION
  Report Type: 
  Country: None (occurrence: None)
  Receive Date: 20111025
  Receipt Date: 20111020
  Transmission Date: 20120403
  Serious: Yes (Hospitalization, Other)
  Sender: FDA-Public Use
  Company Number: US-ABBOTT-11P-163-0723813-00

PATIENT
  Age: 71 Year
  Sex: Female

DRUGS (14)
  1. DEXAMETHATSONE [Suspect]
     Indication: OEDEMA
  2. WARFARIN SODIUM [Interacting]
     Route: 050
  3. DEXAMETHATSONE [Suspect]
     Route: 042
  4. VALPROIC ACID [Interacting]
     Route: 042
  5. VALPROIC ACID [Interacting]
     Route: 050
  6. WARFARIN SODIUM [Interacting]
     Dosage: AT BEDTIME
     Route: 048
  7. MIDAZOLAM HCL [Concomitant]
     Indication: COMPLEX PARTIAL SEIZURES
     Route: 042
  8. FISH OIL [Concomitant]
     Indication: PRODUCT USED FOR UNKNOWN INDICATION
  9. TEMOZOLOMIDE [Concomitant]
     Indication: PRODUCT USED FOR UNKNOWN INDICATION
  10. WARFARIN SODIUM [Interacting]
     Indication: DEEP VEIN THROMBOSIS
     Dosage: 2.5 MG MON-FRI, 5 MG SAT AND SUN
  11. VALPROIC ACID [Interacting]
     Indication: COMPLEX PARTIAL SEIZURES
     Dosage: LOADING DOSE ONCE
     Route: 042
  12. WARFARIN SODIUM [Interacting]
  13. LEVETIRACETAM [Concomitant]
     Indication: COMPLEX PARTIAL SEIZURES
     Route: 042
  14. PRAVASTATIN [Concomitant]
     Indication: PRODUCT USED FOR UNKNOWN INDICATION
     Dosage: 20 MG DAILY
     Route: 048

REACTIONS (2)
  - INTERNATIONAL NORMALISED RATIO INCREASED [None]
  - DRUG INTERACTION [None]
